FAERS Safety Report 21302914 (Version 1)
Quarter: 2022Q3

REPORT INFORMATION
  Report Type: Spontaneous
  Country: US (occurrence: US)
  Receive Date: 20220907
  Receipt Date: 20220907
  Transmission Date: 20221026
  Serious: No
  Sender: FDA-Public Use
  Company Number: US-BAYER-2022A122664

PATIENT
  Age: 19 Year
  Sex: Female

DRUGS (1)
  1. KYLEENA [Suspect]
     Active Substance: LEVONORGESTREL
     Indication: Contraception
     Dosage: 17.5?G/DAY
     Route: 015

REACTIONS (6)
  - Heavy menstrual bleeding [None]
  - Amenorrhoea [None]
  - Vaginal haemorrhage [None]
  - Back pain [None]
  - Abdominal pain [None]
  - Drug effective for unapproved indication [None]
